FAERS Safety Report 11467880 (Version 1)
Quarter: 2015Q3

REPORT INFORMATION
  Report Type: Report from Study
  Country: US (occurrence: US)
  Receive Date: 20150908
  Receipt Date: 20150908
  Transmission Date: 20151125
  Serious: No
  Sender: FDA-Public Use
  Company Number: PHEH2015US014897

PATIENT
  Sex: Female

DRUGS (1)
  1. GILENYA [Suspect]
     Active Substance: FINGOLIMOD HYDROCHLORIDE
     Indication: MULTIPLE SCLEROSIS
     Dosage: 0.5 MG, QD
     Route: 048
     Dates: start: 20150318

REACTIONS (5)
  - Dyskinesia [Recovering/Resolving]
  - Breast discomfort [Recovering/Resolving]
  - Gait disturbance [Recovering/Resolving]
  - Body height increased [Recovering/Resolving]
  - Dysgraphia [Recovering/Resolving]
